FAERS Safety Report 10633920 (Version 2)
Quarter: 2014Q4

REPORT INFORMATION
  Report Type: Spontaneous
  Country: JP (occurrence: JP)
  Receive Date: 20141205
  Receipt Date: 20141205
  Transmission Date: 20150529
  Serious: Yes (Hospitalization)
  Sender: FDA-Public Use
  Company Number: JP-009507513-1411JPN011453

PATIENT
  Age: 57 Year
  Sex: Female
  Weight: 63 kg

DRUGS (9)
  1. PERJETA [Concomitant]
     Active Substance: PERTUZUMAB
     Indication: BREAST CANCER METASTATIC
     Dosage: ONE TIME DOSE: 840 MG
     Route: 041
     Dates: start: 20141114, end: 20141114
  2. HERCEPTIN [Concomitant]
     Active Substance: TRASTUZUMAB
     Indication: BREAST CANCER METASTATIC
     Dosage: ONE TIME DOSE:504MG
     Route: 041
     Dates: start: 20141114, end: 20141114
  3. RESTAMIN (DIPHENHYDRAMINE HYDROCHLORIDE) [Concomitant]
     Dosage: ONE TIME DOSE: 50MG
     Route: 048
     Dates: start: 20141114, end: 20141114
  4. PYRIDOXAL PHOSPHATE [Concomitant]
     Active Substance: PYRIDOXAL PHOSPHATE
     Dosage: ONE TIME DOSE: 20MG, FREQUENCY NOT REPORTED
     Route: 048
     Dates: start: 20141114
  5. REBAMIPIDE [Concomitant]
     Active Substance: REBAMIPIDE
     Dosage: ONE TIME DOSE:100MG, FREQUENCY NOT REPORTED
     Route: 048
     Dates: start: 20141114
  6. TAKEPRON [Concomitant]
     Active Substance: LANSOPRAZOLE
     Dosage: ONE TIME DOSE:15MG
     Route: 048
     Dates: start: 20141115, end: 20141117
  7. DEXART [Concomitant]
     Active Substance: DEXAMETHASONE SODIUM PHOSPHATE
     Indication: PROPHYLAXIS OF NAUSEA AND VOMITING
     Dosage: ONE TIME DOSE: 6.6MG
     Route: 041
     Dates: start: 20141114, end: 20141114
  8. DOCETAXEL. [Concomitant]
     Active Substance: DOCETAXEL
     Indication: BREAST CANCER METASTATIC
     Dosage: ONE TIME DOSE:120MG
     Route: 041
     Dates: start: 20141114, end: 20141114
  9. DEXAMETHASONE. [Suspect]
     Active Substance: DEXAMETHASONE
     Indication: PROPHYLAXIS OF NAUSEA AND VOMITING
     Dosage: ONE TIME DOSE:4MG, FREQUENCY NOT REPORTED, DAILY DOSE 8MG
     Route: 048
     Dates: start: 20141115, end: 20141117

REACTIONS (2)
  - Pharyngitis [Unknown]
  - Laryngeal oedema [Unknown]

NARRATIVE: CASE EVENT DATE: 20141118
